FAERS Safety Report 22312941 (Version 2)
Quarter: 2024Q1

REPORT INFORMATION
  Report Type: Spontaneous
  Country: FR (occurrence: FR)
  Receive Date: 20230512
  Receipt Date: 20240123
  Transmission Date: 20240410
  Serious: Yes (Hospitalization)
  Sender: FDA-Public Use
  Company Number: FR-AFSSAPS-CN2023000231

PATIENT
  Age: 67 Year
  Sex: Male
  Weight: 78 kg

DRUGS (16)
  1. RAMIPRIL [Suspect]
     Active Substance: RAMIPRIL
     Indication: Hypertension
     Dosage: 1.25 MILLIGRAM, DAILY
     Route: 048
     Dates: start: 2022, end: 20230116
  2. ATORVASTATIN [Suspect]
     Active Substance: ATORVASTATIN
     Indication: Ischaemic heart disease prophylaxis
     Dosage: 80 MILLIGRAM, DAILY
     Route: 048
     Dates: start: 20230115, end: 20230116
  3. IOMERON [Suspect]
     Active Substance: IOMEPROL
     Indication: Scan
     Dosage: 90 MILLILITER, UNK
     Route: 040
     Dates: start: 20230214, end: 20230214
  4. IOMERON [Suspect]
     Active Substance: IOMEPROL
     Route: 065
     Dates: start: 20230131, end: 20230131
  5. IOMERON [Suspect]
     Active Substance: IOMEPROL
     Route: 065
     Dates: start: 20230207, end: 20230207
  6. IOMERON [Suspect]
     Active Substance: IOMEPROL
     Route: 065
     Dates: start: 20230117, end: 20230117
  7. IOMERON [Suspect]
     Active Substance: IOMEPROL
     Route: 065
     Dates: start: 20230114, end: 20230114
  8. IOMERON [Suspect]
     Active Substance: IOMEPROL
     Route: 065
     Dates: start: 20230124, end: 20230124
  9. KARDEGIC [Suspect]
     Active Substance: ASPIRIN DL-LYSINE
     Indication: Ischaemic heart disease prophylaxis
     Dosage: 75 MILLIGRAM, DAILY
     Route: 048
     Dates: start: 20230115
  10. LANSOPRAZOLE [Suspect]
     Active Substance: LANSOPRAZOLE
     Indication: Gastrooesophageal reflux disease
     Dosage: 15 MILLIGRAM, DAILY
     Route: 048
     Dates: start: 2017, end: 20230116
  11. CHLORHYDRATE DE CICLETANINE [Concomitant]
     Indication: Hypertension
     Dosage: 100 MILLIGRAM, DAILY
     Route: 048
     Dates: start: 2017, end: 20230116
  12. MOXONIDINE [Concomitant]
     Active Substance: MOXONIDINE
     Indication: Hypertension
     Dosage: 0.2 MILLIGRAM, DAILY
     Route: 048
     Dates: start: 2017, end: 20230116
  13. LERCANIDIPINE HYDROCHLORIDE [Concomitant]
     Active Substance: LERCANIDIPINE HYDROCHLORIDE
     Indication: Hypertension
     Dosage: 20 MILLIGRAM, DAILY
     Route: 048
     Dates: start: 2017, end: 20230116
  14. MORPHINE HYDROCHLORIDE [Concomitant]
     Active Substance: MORPHINE HYDROCHLORIDE
     Indication: Pain
     Dosage: 24 MILLIGRAM, DAILY
     Route: 040
     Dates: start: 20230115, end: 20230119
  15. AVOCADO OIL\SOYBEAN OIL [Concomitant]
     Active Substance: AVOCADO OIL\SOYBEAN OIL
     Indication: Osteoarthritis
     Dosage: 300 MILLIGRAM, DAILY
     Route: 048
     Dates: start: 2017, end: 20230116
  16. TICAGRELOR [Concomitant]
     Active Substance: TICAGRELOR
     Indication: Ischaemic heart disease prophylaxis
     Dosage: 90 MILLIGRAM, BID
     Route: 048
     Dates: start: 20230115, end: 20230130

REACTIONS (1)
  - Pancreatitis acute [Recovering/Resolving]

NARRATIVE: CASE EVENT DATE: 20230115
